FAERS Safety Report 25311684 (Version 1)
Quarter: 2025Q2

REPORT INFORMATION
  Report Type: Spontaneous
  Country: US (occurrence: US)
  Receive Date: 20250514
  Receipt Date: 20250514
  Transmission Date: 20250716
  Serious: Yes (Other)
  Sender: AUROBINDO
  Company Number: US-AUROBINDO-AUR-APL-2025-023762

PATIENT
  Age: 29 Year
  Sex: Male

DRUGS (2)
  1. NAPROXEN [Suspect]
     Active Substance: NAPROXEN
     Indication: Pain
     Route: 065
  2. LYSERGIDE [Concomitant]
     Active Substance: LYSERGIDE
     Indication: Product used for unknown indication
     Route: 065

REACTIONS (1)
  - Peptic ulcer perforation [Unknown]
